FAERS Safety Report 25336586 (Version 4)
Quarter: 2025Q2

REPORT INFORMATION
  Report Type: Report from Study
  Country: KR (occurrence: KR)
  Receive Date: 20250520
  Receipt Date: 20250605
  Transmission Date: 20250716
  Serious: Yes (Hospitalization, Other)
  Sender: LEO PHARM
  Company Number: KR-LEO Pharma-379487

PATIENT
  Age: 17 Year
  Sex: Male
  Weight: 75 kg

DRUGS (10)
  1. ADBRY [Suspect]
     Active Substance: TRALOKINUMAB-LDRM
     Indication: Dermatitis atopic
     Route: 058
     Dates: start: 20250324, end: 20250324
  2. ADBRY [Suspect]
     Active Substance: TRALOKINUMAB-LDRM
     Indication: Dermatitis atopic
     Route: 058
     Dates: start: 20250324, end: 20250324
  3. ADBRY [Suspect]
     Active Substance: TRALOKINUMAB-LDRM
     Indication: Dermatitis atopic
     Route: 058
     Dates: start: 20250407, end: 20250422
  4. ADBRY [Suspect]
     Active Substance: TRALOKINUMAB-LDRM
     Indication: Dermatitis atopic
     Route: 058
     Dates: start: 20250407, end: 20250422
  5. Escorten [Concomitant]
     Indication: Gastrointestinal disorder prophylaxis
     Dosage: 10 MG
     Route: 048
     Dates: start: 20250422, end: 20250501
  6. RUPAFIN [Concomitant]
     Active Substance: RUPATADINE FUMARATE
     Indication: Dermatitis atopic
     Route: 048
     Dates: start: 20240430
  7. ELIDEL [Concomitant]
     Active Substance: PIMECROLIMUS
     Indication: Dermatitis atopic
     Route: 003
     Dates: start: 20240430
  8. Cipol-N [Concomitant]
     Indication: Dermatitis atopic
     Route: 048
     Dates: start: 20240924, end: 20250323
  9. DESOWEN [Concomitant]
     Active Substance: DESONIDE
     Indication: Dermatitis atopic
     Route: 003
     Dates: start: 20250107
  10. Evoprim [Concomitant]
     Indication: Dermatitis atopic
     Route: 048
     Dates: start: 20240924, end: 20250420

REACTIONS (2)
  - Eczema herpeticum [Recovered/Resolved]
  - Therapeutic product effect incomplete [Unknown]

NARRATIVE: CASE EVENT DATE: 20250428
